FAERS Safety Report 6383205-2 (Version None)
Quarter: 2009Q3

REPORT INFORMATION
  Report Type: 
  Country: None (occurrence: None)
  Receive Date: 20090930
  Receipt Date: 20090924
  Transmission Date: 20100115
  Serious: Yes (Hospitalization)
  Sender: FDA-Public Use
  Company Number: US-B.I. PHARMACEUTICALS,INC./RIDGEFIELD-2009-BP-08331BP

PATIENT
  Age: 65 Year
  Sex: Male

DRUGS (6)
  1. FLOMAX [Suspect]
     Indication: BENIGN PROSTATIC HYPERPLASIA
     Dosage: 0.4 MG
     Route: 048
     Dates: start: 20070101, end: 20090601
  2. LESCOL [Suspect]
     Indication: BLOOD CHOLESTEROL INCREASED
     Dates: start: 20070101, end: 20090601
  3. ASPIRIN [Suspect]
     Indication: PROPHYLAXIS
     Dates: start: 20060101, end: 20090601
  4. RANITIDINE [Suspect]
     Indication: GASTROOESOPHAGEAL REFLUX DISEASE
     Dates: start: 20060101
  5. COPAXONE [Suspect]
     Indication: MULTIPLE SCLEROSIS
     Dates: start: 20080601, end: 20090501
  6. MAVIK [Suspect]
     Indication: HYPERTENSION
     Dates: start: 20060101, end: 20090501

REACTIONS (6)
  - ANGIOEDEMA [None]
  - BLOOD URINE PRESENT [None]
  - CALCULUS BLADDER [None]
  - TRANSIENT ISCHAEMIC ATTACK [None]
  - URINARY TRACT INFECTION [None]
  - URTICARIA [None]
